FAERS Safety Report 6594728-5 (Version None)
Quarter: 2010Q1

REPORT INFORMATION
  Report Type: 
  Country: None (occurrence: None)
  Receive Date: 20100222
  Receipt Date: 20100211
  Transmission Date: 20100710
  Serious: Yes (Death, Other)
  Sender: FDA-Public Use
  Company Number: AU-AMGEN-US379506

PATIENT

DRUGS (3)
  1. ENBREL [Suspect]
     Indication: PSORIASIS
     Route: 058
  2. CYCLOSPORINE [Suspect]
     Indication: PSORIASIS
     Route: 065
  3. METHOTREXATE [Suspect]
     Indication: PSORIASIS
     Route: 065

REACTIONS (2)
  - DEATH [None]
  - HEPATOSPLENIC T-CELL LYMPHOMA [None]
